FAERS Safety Report 22379427 (Version 1)
Quarter: 2023Q2

REPORT INFORMATION
  Report Type: Spontaneous
  Country: CN (occurrence: CN)
  Receive Date: 20230529
  Receipt Date: 20230529
  Transmission Date: 20230722
  Serious: Yes (Hospitalization)
  Sender: FDA-Public Use
  Company Number: CN-PFIZER INC-PV202300092223

PATIENT
  Age: 37 Year
  Sex: Male
  Weight: 80 kg

DRUGS (6)
  1. CYTARABINE [Suspect]
     Active Substance: CYTARABINE
     Indication: Lymphoma
     Dosage: 0.4 G, 2X/DAY
     Route: 042
     Dates: start: 20230425, end: 20230428
  2. CYTARABINE [Suspect]
     Active Substance: CYTARABINE
     Indication: Hodgkin^s disease
  3. CYTARABINE [Suspect]
     Active Substance: CYTARABINE
     Indication: Thymus enlargement
  4. ETOPOSIDE [Concomitant]
     Active Substance: ETOPOSIDE
     Indication: Lymphoma
     Dosage: 0.1 G, 1X/DAY
     Route: 041
     Dates: start: 20230425, end: 20230428
  5. ETOPOSIDE [Concomitant]
     Active Substance: ETOPOSIDE
     Indication: Hodgkin^s disease
  6. ETOPOSIDE [Concomitant]
     Active Substance: ETOPOSIDE
     Indication: Thymus enlargement

REACTIONS (6)
  - Agranulocytosis [Recovering/Resolving]
  - Pyrexia [Recovering/Resolving]
  - Temperature intolerance [Recovering/Resolving]
  - Discomfort [Recovering/Resolving]
  - White blood cell count decreased [Recovering/Resolving]
  - Off label use [Unknown]

NARRATIVE: CASE EVENT DATE: 20230425
